FAERS Safety Report 10383949 (Version 1)
Quarter: 2014Q3

REPORT INFORMATION
  Report Type: Spontaneous
  Country: US (occurrence: US)
  Receive Date: 20140814
  Receipt Date: 20140814
  Transmission Date: 20150326
  Serious: Yes (Other)
  Sender: FDA-Public Use
  Company Number: US-MYLAN-2014S1011944

PATIENT
  Age: 23 Year
  Sex: Female

DRUGS (1)
  1. XULANE [Suspect]
     Active Substance: ETHINYL ESTRADIOL\NORELGESTROMIN
     Indication: CONTRACEPTION
     Dosage: 150 ?G,QD
     Route: 062
     Dates: start: 20140516

REACTIONS (3)
  - Dysmenorrhoea [Not Recovered/Not Resolved]
  - Abdominal pain [Not Recovered/Not Resolved]
  - Menorrhagia [Not Recovered/Not Resolved]

NARRATIVE: CASE EVENT DATE: 20140519
